FAERS Safety Report 16461946 (Version 1)
Quarter: 2019Q2

REPORT INFORMATION
  Report Type: Spontaneous
  Country: US (occurrence: US)
  Receive Date: 20190621
  Receipt Date: 20190621
  Transmission Date: 20190711
  Serious: No
  Sender: FDA-Public Use
  Company Number: US-MELINTA THERAPEUTICS, INC-US-MLNT-19-00046

PATIENT

DRUGS (4)
  1. BEDAQUILINE [Concomitant]
     Active Substance: BEDAQUILINE
     Indication: MYCOBACTERIUM ABSCESSUS INFECTION
     Dosage: NOT PROVIDED
  2. VABOMERE [Suspect]
     Active Substance: MEROPENEM\VABORBACTAM
     Indication: MYCOBACTERIUM ABSCESSUS INFECTION
     Route: 042
  3. IMIPENEM [Concomitant]
     Active Substance: IMIPENEM
     Indication: MYCOBACTERIUM ABSCESSUS INFECTION
     Dosage: NOT PROVIDED
  4. TIGECYCLINE. [Concomitant]
     Active Substance: TIGECYCLINE
     Indication: MYCOBACTERIUM ABSCESSUS INFECTION
     Dosage: NOT PROVIDED

REACTIONS (3)
  - Aspartate aminotransferase increased [Recovered/Resolved]
  - Off label use [Recovered/Resolved]
  - Alanine aminotransferase increased [Recovered/Resolved]
